FAERS Safety Report 4479621-6 (Version None)
Quarter: 2004Q4

REPORT INFORMATION
  Report Type: 
  Country: None (occurrence: None)
  Receive Date: 20041015
  Receipt Date: 20041005
  Transmission Date: 20050328
  Serious: Yes (Other)
  Sender: FDA-Public Use
  Company Number: HQ4448301OCT2002

PATIENT
  Age: 41 Year
  Sex: Female

DRUGS (13)
  1. RAPAMUNE [Suspect]
     Indication: IMMUNOSUPPRESSION
     Dosage: 1 MG 1X PER 1 DAY, ORAL
     Route: 048
     Dates: start: 20011101, end: 20011101
  2. CYCLOSPORINE [Concomitant]
  3. PREDNISONE [Concomitant]
  4. ACYCLOVIR [Concomitant]
  5. PANCRELIPASE (PANCRELIPASE) [Concomitant]
  6. ATORVASTATIN (ATORVASTATIN) [Concomitant]
  7. SULFAMETHOXAZOLE + TRIMETHOPRIM [Concomitant]
  8. CLONIDINE [Concomitant]
  9. LOSARTAN (LOSARTAN) [Concomitant]
  10. CALCIUM CARBONATE (CALCIUM CARBONATE) [Concomitant]
  11. MULTIVITAMINS, PLAIN (MULTIVITAMINS, PLAIN) [Concomitant]
  12. VITAMIN E [Concomitant]
  13. BARANO (CO-TRIMOXAZOLE/ FENPIVERINIUM BROMIDE/ METAMIZOLE/ PITOFENONE [Concomitant]

REACTIONS (4)
  - COMPLEMENT FACTOR DECREASED [None]
  - DRUG LEVEL BELOW THERAPEUTIC [None]
  - DRUG LEVEL CHANGED [None]
  - LEUKOCYTOCLASTIC VASCULITIS [None]
